FAERS Safety Report 6342239-4 (Version None)
Quarter: 2009Q3

REPORT INFORMATION
  Report Type: 
  Country: None (occurrence: None)
  Receive Date: 20090903
  Receipt Date: 20090903
  Transmission Date: 20100115
  Serious: Yes (Life-Threatening, Hospitalization, Other)
  Sender: FDA-Public Use
  Company Number: None

PATIENT
  Sex: Female
  Weight: 68.2 kg

DRUGS (3)
  1. CEFTRIAXONE [Suspect]
     Indication: INFECTION
     Dosage: 1GM ONCE DAILY IV
     Route: 042
     Dates: start: 20090825, end: 20090827
  2. HEPARIN [Suspect]
  3. ACETAMINOPHEN [Suspect]

REACTIONS (5)
  - ABDOMINAL PAIN UPPER [None]
  - ERYTHEMA [None]
  - INFECTION [None]
  - MOUTH HAEMORRHAGE [None]
  - PAIN OF SKIN [None]
